FAERS Safety Report 16648283 (Version 2)
Quarter: 2019Q3

REPORT INFORMATION
  Report Type: Report from Study
  Country: US (occurrence: US)
  Receive Date: 20190730
  Receipt Date: 20190906
  Transmission Date: 20191004
  Serious: Yes (Death, Hospitalization, Other)
  Sender: FDA-Public Use
  Company Number: PHEH2019US031379

PATIENT
  Age: 83 Year
  Sex: Male
  Weight: 154 kg

DRUGS (2)
  1. MEKINIST [Suspect]
     Active Substance: TRAMETINIB DIMETHYL SULFOXIDE
     Indication: PRODUCT USED FOR UNKNOWN INDICATION
     Dosage: UNK
     Route: 065
  2. TAFINLAR [Suspect]
     Active Substance: DABRAFENIB MESYLATE
     Indication: NON-SMALL CELL LUNG CANCER
     Dosage: 150 MG, BID
     Route: 048
     Dates: start: 20190523

REACTIONS (11)
  - Haematemesis [Unknown]
  - Haemoptysis [Unknown]
  - Aspiration [Unknown]
  - Fall [Unknown]
  - Fatigue [Unknown]
  - Sinusitis [Unknown]
  - Appetite disorder [Recovering/Resolving]
  - Dyspnoea [Recovering/Resolving]
  - Hypoxia [Fatal]
  - Cardio-respiratory arrest [Fatal]
  - Cough [Recovering/Resolving]

NARRATIVE: CASE EVENT DATE: 20190725
